FAERS Safety Report 19660252 (Version 3)
Quarter: 2021Q3

REPORT INFORMATION
  Report Type: Spontaneous
  Country: GB (occurrence: GB)
  Receive Date: 20210805
  Receipt Date: 20210907
  Transmission Date: 20211014
  Serious: Yes (Other)
  Sender: FDA-Public Use
  Company Number: NVSC2021GB147054

PATIENT
  Age: 55 Year
  Sex: Male

DRUGS (7)
  1. METHOTREXATE. [Concomitant]
     Active Substance: METHOTREXATE
     Indication: ILL-DEFINED DISORDER
     Dosage: 10 MG, QW
     Route: 065
  2. APREMILAST [Suspect]
     Active Substance: APREMILAST
     Dosage: 30 MG QD
     Route: 048
     Dates: end: 20210423
  3. OMEPRAZOLE SODIUM [Concomitant]
     Active Substance: OMEPRAZOLE SODIUM
     Indication: ILL-DEFINED DISORDER
     Dosage: UNK
     Route: 065
  4. VOLTAREN [Suspect]
     Active Substance: DICLOFENAC SODIUM
     Indication: PSORIATIC ARTHROPATHY
     Dosage: 150 MG, QD
     Route: 048
     Dates: start: 20201210, end: 20210423
  5. VOLTAREN [Suspect]
     Active Substance: DICLOFENAC SODIUM
     Indication: PRODUCT USED FOR UNKNOWN INDICATION
     Dosage: 75 MG, BID
     Route: 048
     Dates: start: 20201210, end: 20210423
  6. APREMILAST [Suspect]
     Active Substance: APREMILAST
     Indication: PSORIATIC ARTHROPATHY
     Dosage: 60 MG QD
     Route: 048
     Dates: start: 20201111
  7. NIZATIDINE. [Concomitant]
     Active Substance: NIZATIDINE
     Indication: ILL-DEFINED DISORDER
     Dosage: UNK
     Route: 065

REACTIONS (9)
  - Off label use [Unknown]
  - Abdominal pain upper [Recovering/Resolving]
  - Barrett^s oesophagus [Unknown]
  - Diarrhoea [Unknown]
  - Gastritis [Unknown]
  - Dyspepsia [Unknown]
  - Hiatus hernia [Unknown]
  - Haemoptysis [Unknown]
  - Intestinal metaplasia [Unknown]

NARRATIVE: CASE EVENT DATE: 20210423
